FAERS Safety Report 15813206 (Version 1)
Quarter: 2019Q1

REPORT INFORMATION
  Report Type: Spontaneous
  Country: US (occurrence: US)
  Receive Date: 20190107
  Receipt Date: 20190107
  Transmission Date: 20190417
  Serious: No
  Sender: FDA-Public Use
  Company Number: None

PATIENT

DRUGS (2)
  1. VITAMIN A AND D (PETROLATUM) [Suspect]
     Active Substance: PETROLATUM
     Route: 061
  2. WHITE PETROLATUM [Suspect]
     Active Substance: PETROLATUM
     Route: 061

REACTIONS (1)
  - Product appearance confusion [None]
